FAERS Safety Report 6536898-0 (Version None)
Quarter: 2010Q1

REPORT INFORMATION
  Report Type: 
  Country: None (occurrence: None)
  Receive Date: 20100106
  Receipt Date: 20091223
  Transmission Date: 20100710
  Serious: Yes (Life-Threatening, Hospitalization)
  Sender: FDA-Public Use
  Company Number: 1000010263

PATIENT
  Age: 84 Year
  Sex: Female
  Weight: 49 kg

DRUGS (6)
  1. CITALOPRAM HYDROBROMIDE [Suspect]
     Indication: DEPRESSION
     Dosage: 20 MG (20 MG, 1 IN 1 D), ORAL
     Route: 048
     Dates: start: 20090820, end: 20090830
  2. ALDACTONE [Suspect]
     Indication: CARDIAC FAILURE
     Dosage: 100 MG (100 MG,1 IN 1 D),ORAL
     Route: 048
     Dates: start: 20090822
  3. BELOC-ZOK [Concomitant]
  4. DETRUSITOL [Concomitant]
  5. KALIUM [Concomitant]
  6. PANTOPRAZOL [Concomitant]

REACTIONS (5)
  - CARDIOVASCULAR INSUFFICIENCY [None]
  - COGNITIVE DISORDER [None]
  - DIZZINESS POSTURAL [None]
  - DRUG INTERACTION [None]
  - HYPONATRAEMIA [None]
